FAERS Safety Report 16888704 (Version 1)
Quarter: 2019Q4

REPORT INFORMATION
  Report Type: Spontaneous
  Country: DE (occurrence: DE)
  Receive Date: 20191007
  Receipt Date: 20191007
  Transmission Date: 20200122
  Serious: No
  Sender: FDA-Public Use
  Company Number: DE-HORMOSAN PHARMA GMBH-2019-05350

PATIENT
  Age: 78 Year
  Sex: Female

DRUGS (2)
  1. OXYCODONE HCL 2 X TAGLICH HORMOSAN 10 MG RETARDTABLETTEN [Suspect]
     Active Substance: OXYCODONE HYDROCHLORIDE
     Indication: PAIN
     Dosage: 10 MILLIGRAM, QD
     Route: 048
     Dates: start: 20190813
  2. LEVETIRACETAM UCB [Concomitant]
     Active Substance: LEVETIRACETAM
     Indication: EPILEPSY
     Dosage: UNK
     Route: 065

REACTIONS (3)
  - Gait disturbance [Unknown]
  - Hypertension [Unknown]
  - Confusional state [Unknown]

NARRATIVE: CASE EVENT DATE: 20190814
